FAERS Safety Report 19942093 (Version 1)
Quarter: 2021Q4

REPORT INFORMATION
  Report Type: Other
  Country: JP (occurrence: JP)
  Receive Date: 20211012
  Receipt Date: 20211012
  Transmission Date: 20220303
  Serious: Yes (Other)
  Sender: FDA-Public Use
  Company Number: JP-CHUGAI-2021021060

PATIENT
  Age: 73 Year
  Sex: Female
  Weight: 61 kg

DRUGS (5)
  1. POLATUZUMAB VEDOTIN [Suspect]
     Active Substance: POLATUZUMAB VEDOTIN
     Indication: Diffuse large B-cell lymphoma
     Dosage: 1.8 MILLIGRAM/KILOGRAM, QD
     Route: 041
     Dates: start: 20210607, end: 20210607
  2. BENDAMUSTINE HYDROCHLORIDE [Concomitant]
     Active Substance: BENDAMUSTINE HYDROCHLORIDE
     Indication: Diffuse large B-cell lymphoma
     Dosage: UNK
     Route: 041
     Dates: start: 20210607, end: 20210608
  3. RITUXIMAB [Concomitant]
     Active Substance: RITUXIMAB
     Indication: Diffuse large B-cell lymphoma
     Dosage: UNK, QD
     Route: 041
     Dates: start: 20210604, end: 20210604
  4. ACYCLOVIR [Concomitant]
     Active Substance: ACYCLOVIR
     Indication: Infection prophylaxis
     Dosage: UNK
     Route: 065
  5. VORICONAZOLE [Concomitant]
     Active Substance: VORICONAZOLE
     Indication: Infection prophylaxis
     Dosage: UNK
     Route: 065

REACTIONS (3)
  - Ileus paralytic [Recovered/Resolved]
  - Tumour lysis syndrome [Recovered/Resolved]
  - Drug ineffective [Unknown]

NARRATIVE: CASE EVENT DATE: 20210609
